FAERS Safety Report 5332746-5 (Version None)
Quarter: 2007Q2

REPORT INFORMATION
  Report Type: 
  Country: None (occurrence: None)
  Receive Date: 20070523
  Receipt Date: 20070518
  Transmission Date: 20071010
  Serious: Yes (Hospitalization)
  Sender: FDA-Public Use
  Company Number: IT-MERCK-0705ITA00019

PATIENT
  Age: 79 Year
  Sex: Male

DRUGS (8)
  1. ZOCOR [Suspect]
     Indication: ARTERIOSCLEROSIS
     Route: 048
     Dates: start: 20070101, end: 20070507
  2. BISOPROLOL FUMARATE [Concomitant]
     Route: 065
  3. ALLOPURINOL [Concomitant]
     Route: 048
  4. WARFARIN SODIUM [Concomitant]
     Route: 048
  5. NITROGLYCERIN [Concomitant]
     Route: 061
  6. RIVASTIGMINE [Concomitant]
     Route: 048
  7. LEVOFLOXACIN [Concomitant]
     Route: 065
     Dates: start: 20070324, end: 20070330
  8. CLARITHROMYCIN [Concomitant]
     Route: 048
     Dates: start: 20070326, end: 20070401

REACTIONS (6)
  - DYSPNOEA EXERTIONAL [None]
  - HEPATIC FUNCTION ABNORMAL [None]
  - MUSCULAR WEAKNESS [None]
  - MYOGLOBINURIA [None]
  - MYOPATHY [None]
  - RENAL FAILURE [None]
